FAERS Safety Report 6047158-9 (Version None)
Quarter: 2009Q1

REPORT INFORMATION
  Report Type: 
  Country: None (occurrence: None)
  Receive Date: 20090122
  Receipt Date: 20090115
  Transmission Date: 20090719
  Serious: Yes (Hospitalization, Other)
  Sender: FDA-Public Use
  Company Number: CA-ASTRAZENECA-2009UW01532

PATIENT
  Age: 50 Year
  Sex: Male
  Weight: 84.4 kg

DRUGS (5)
  1. CRESTOR [Suspect]
     Route: 048
  2. METOPROLOL TARTRATE [Interacting]
     Route: 048
  3. PLAVIX [Interacting]
     Route: 048
  4. PLAVIX [Interacting]
     Route: 048
  5. ASPIRIN [Concomitant]

REACTIONS (3)
  - DRUG INTERACTION [None]
  - RASH [None]
  - RASH ERYTHEMATOUS [None]
